FAERS Safety Report 11916559 (Version 1)
Quarter: 2016Q1

REPORT INFORMATION
  Report Type: Spontaneous
  Country: US (occurrence: US)
  Receive Date: 20160114
  Receipt Date: 20160114
  Transmission Date: 20160526
  Serious: No
  Sender: FDA-Public Use
  Company Number: US-WATSON-2015-08258

PATIENT
  Age: 49 Year
  Sex: Female

DRUGS (2)
  1. NICOTINE POLACRILEX, COATED FRUIT FLAVOR [Suspect]
     Active Substance: NICOTINE
     Indication: SMOKING CESSATION THERAPY
     Dosage: CHEW AND PARK, 1 DF, FIVE TIMES A DAY
     Route: 002
     Dates: start: 201501, end: 20150404
  2. NICOTINE POLACRILEX, COATED MINT FLAVOR [Suspect]
     Active Substance: NICOTINE
     Indication: SMOKING CESSATION THERAPY
     Dosage: CHEW AND PARK, 1 DF, FIVE TIMES A DAY
     Route: 002
     Dates: start: 201501, end: 20150403

REACTIONS (1)
  - Stomatitis [Recovering/Resolving]

NARRATIVE: CASE EVENT DATE: 201501
